FAERS Safety Report 8090838-4 (Version None)
Quarter: 2012Q1

REPORT INFORMATION
  Report Type: 
  Country: None (occurrence: None)
  Receive Date: 20120131
  Receipt Date: 20120119
  Transmission Date: 20120608
  Serious: Yes (Hospitalization)
  Sender: FDA-Public Use
  Company Number: DK-JNJFOC-20120109401

PATIENT
  Sex: Male

DRUGS (7)
  1. REMICADE [Suspect]
     Indication: ANKYLOSING SPONDYLITIS
     Route: 042
     Dates: start: 20110915
  2. UNIKALK FORTE [Concomitant]
     Indication: OSTEOPOROSIS
     Route: 065
  3. PRAMIPEXOLE DIHYDROCHLORIDE [Concomitant]
     Indication: RESTLESS LEGS SYNDROME
     Route: 065
  4. REMICADE [Suspect]
     Dosage: RECEIVED 3RD INFUSION
     Route: 042
     Dates: start: 20111104
  5. MANDOLGIN [Concomitant]
     Indication: PAIN
     Route: 065
  6. DICLOFENAC [Suspect]
     Indication: PAIN
     Route: 065
  7. ALENDRONATE SODIUM [Concomitant]
     Indication: OSTEOPOROSIS
     Route: 065

REACTIONS (3)
  - CEREBRAL INFARCTION [None]
  - HEMIPARESIS [None]
  - HEMIANOPIA [None]
